FAERS Safety Report 16081075 (Version 1)
Quarter: 2019Q1

REPORT INFORMATION
  Report Type: Spontaneous
  Country: IT (occurrence: IT)
  Receive Date: 20190316
  Receipt Date: 20190316
  Transmission Date: 20190418
  Serious: Yes (Hospitalization, Other)
  Sender: FDA-Public Use
  Company Number: IT-AUROBINDO-AUR-APL-2019-013345

PATIENT

DRUGS (3)
  1. AMOXICILLIN. [Suspect]
     Active Substance: AMOXICILLIN
     Indication: LYMPHOEDEMA
     Dosage: 2 GRAM, ONCE A DAY
     Route: 048
  2. CLAVULANIC ACID [Suspect]
     Active Substance: CLAVULANIC ACID
     Indication: LYMPHOEDEMA
     Dosage: UNK
     Route: 065
  3. ATORVASTATIN [Suspect]
     Active Substance: ATORVASTATIN
     Indication: CORONARY ARTERY DISEASE
     Dosage: 10 MILLIGRAM, ONCE A DAY SINCE 6 YEARS
     Route: 048

REACTIONS (7)
  - Chromaturia [Recovering/Resolving]
  - Movement disorder [Recovering/Resolving]
  - Muscular weakness [Recovering/Resolving]
  - Rhabdomyolysis [Recovering/Resolving]
  - Jaundice [Recovering/Resolving]
  - Drug interaction [Recovering/Resolving]
  - Hepatitis cholestatic [Recovering/Resolving]
